FAERS Safety Report 19471333 (Version 4)
Quarter: 2021Q3

REPORT INFORMATION
  Report Type: Spontaneous
  Country: US (occurrence: US)
  Receive Date: 20210628
  Receipt Date: 20210901
  Transmission Date: 20211014
  Serious: Yes (Other)
  Sender: FDA-Public Use
  Company Number: US-TEVA-2021-US-1927174

PATIENT
  Age: 64 Year
  Sex: Female

DRUGS (1)
  1. JUNEL FE 1/20 [Suspect]
     Active Substance: ETHINYL ESTRADIOL\NORETHINDRONE ACETATE
     Dosage: 43 YEARS,
     Route: 065

REACTIONS (5)
  - Malaise [Unknown]
  - Alopecia [Not Recovered/Not Resolved]
  - Goitre [Unknown]
  - Myocardial infarction [Unknown]
  - Blood oestrogen decreased [Unknown]

NARRATIVE: CASE EVENT DATE: 2019
